FAERS Safety Report 23428973 (Version 1)
Quarter: 2024Q1

REPORT INFORMATION
  Report Type: Spontaneous
  Country: FR (occurrence: FR)
  Receive Date: 20240122
  Receipt Date: 20240122
  Transmission Date: 20240409
  Serious: Yes (Hospitalization)
  Sender: FDA-Public Use
  Company Number: None

PATIENT
  Age: 21 Day
  Sex: Female

DRUGS (2)
  1. TRILEPTAL [Suspect]
     Active Substance: OXCARBAZEPINE
     Indication: Epilepsy
     Dosage: 750MG MATIN ET SOIR
     Route: 048
     Dates: end: 20231121
  2. CLOBAZAM [Concomitant]
     Active Substance: CLOBAZAM
     Indication: Product used for unknown indication
     Dosage: 20 MG (10 MG MATIN ET SOIR)
     Route: 048
     Dates: end: 20231121

REACTIONS (3)
  - Eating disorder [Not Recovered/Not Resolved]
  - Hypertonia [Not Recovered/Not Resolved]
  - Weight decrease neonatal [Not Recovered/Not Resolved]

NARRATIVE: CASE EVENT DATE: 20231212
